FAERS Safety Report 14392816 (Version 1)
Quarter: 2018Q1

REPORT INFORMATION
  Report Type: Spontaneous
  Country: US (occurrence: US)
  Receive Date: 20180113
  Receipt Date: 20180113
  Transmission Date: 20180509
  Serious: Yes (Disabling)
  Sender: FDA-Public Use
  Company Number: None

PATIENT
  Age: 48 Year
  Sex: Female
  Weight: 66.15 kg

DRUGS (2)
  1. MIRAPEX [Suspect]
     Active Substance: PRAMIPEXOLE DIHYDROCHLORIDE
     Indication: PAIN
     Dates: start: 19950101, end: 19960101
  2. MIRAPEX [Suspect]
     Active Substance: PRAMIPEXOLE DIHYDROCHLORIDE
     Indication: FIBROMYALGIA
     Dates: start: 19950101, end: 19960101

REACTIONS (4)
  - Unevaluable event [None]
  - Gambling disorder [None]
  - Bipolar disorder [None]
  - Therapy cessation [None]

NARRATIVE: CASE EVENT DATE: 19960601
